FAERS Safety Report 22993886 (Version 5)
Quarter: 2024Q1

REPORT INFORMATION
  Report Type: Spontaneous
  Country: DE (occurrence: DE)
  Receive Date: 20230927
  Receipt Date: 20240102
  Transmission Date: 20240410
  Serious: Yes (Hospitalization)
  Sender: FDA-Public Use
  Company Number: DE-IPSEN Group, Research and Development-2023-20818

PATIENT
  Age: 81 Year
  Sex: Male
  Weight: 72.2 kg

DRUGS (3)
  1. CABOMETYX [Suspect]
     Active Substance: CABOZANTINIB S-MALATE
     Indication: Renal cancer
     Dosage: 40 MG
     Route: 065
     Dates: start: 202302
  2. CABOMETYX [Suspect]
     Active Substance: CABOZANTINIB S-MALATE
     Dosage: 20 MG EVERY 2ND DAY
     Route: 065
     Dates: end: 20230912
  3. NIVOLUMAB [Suspect]
     Active Substance: NIVOLUMAB
     Indication: Product used for unknown indication
     Dosage: UNK
     Route: 065

REACTIONS (11)
  - Aphthous ulcer [Unknown]
  - Stomatitis [Unknown]
  - Faecal calprotectin increased [Unknown]
  - Lymphadenopathy [Unknown]
  - Glossodynia [Unknown]
  - Epistaxis [Unknown]
  - Amylase increased [Unknown]
  - Weight decreased [Unknown]
  - Rash [Unknown]
  - Hypertension [Unknown]
  - Off label use [Unknown]
